FAERS Safety Report 7224115-8 (Version None)
Quarter: 2011Q1

REPORT INFORMATION
  Report Type: 
  Country: None (occurrence: None)
  Receive Date: 20110106
  Receipt Date: 20110106
  Transmission Date: 20110831
  Serious: Yes (Hospitalization)
  Sender: FDA-Public Use
  Company Number: None

PATIENT
  Age: 63 Year
  Sex: Male
  Weight: 75 kg

DRUGS (12)
  1. ZOLOFT [Concomitant]
  2. ASPIRIN [Concomitant]
  3. NEXIUM [Concomitant]
  4. LIPITOR [Concomitant]
  5. M.V.I. [Concomitant]
  6. NORVASC [Concomitant]
  7. LISINOPRIL [Concomitant]
  8. GABAPENTIN [Concomitant]
  9. BACLOFEN [Concomitant]
  10. DETROL LA [Concomitant]
  11. TOPROL-XL [Concomitant]
  12. TEGRETOL [Suspect]
     Indication: CONVULSION
     Dosage: 200MG TID PO RECENT
     Route: 048

REACTIONS (3)
  - PNEUMONIA ASPIRATION [None]
  - SOMNOLENCE [None]
  - ASTHENIA [None]
